FAERS Safety Report 17403768 (Version 1)
Quarter: 2020Q1

REPORT INFORMATION
  Report Type: Spontaneous
  Country: DE (occurrence: DE)
  Receive Date: 20200211
  Receipt Date: 20200211
  Transmission Date: 20200409
  Serious: Yes (Hospitalization)
  Sender: FDA-Public Use
  Company Number: DE-TEVA-2020-DE-1184021

PATIENT
  Age: 17 Year
  Sex: Female
  Weight: 66 kg

DRUGS (1)
  1. IBUPROFEN. [Suspect]
     Active Substance: IBUPROFEN
     Indication: ABDOMINAL PAIN LOWER
     Dosage: 6.4 GRAM
     Route: 048
     Dates: start: 20191129, end: 20191129

REACTIONS (5)
  - Tremor [Recovering/Resolving]
  - Mechanical ventilation [Recovering/Resolving]
  - Facial spasm [Recovering/Resolving]
  - Respiratory arrest [Recovering/Resolving]
  - Intentional overdose [Recovering/Resolving]

NARRATIVE: CASE EVENT DATE: 20191129
